FAERS Safety Report 7285384-1 (Version None)
Quarter: 2011Q1

REPORT INFORMATION
  Report Type: 
  Country: None (occurrence: None)
  Receive Date: 20110121
  Receipt Date: 20041021
  Transmission Date: 20110831
  Serious: No
  Sender: FDA-Public Use
  Company Number: AE 2004-001

PATIENT
  Sex: Female
  Weight: 104.3273 kg

DRUGS (17)
  1. SLO-MAG [Concomitant]
  2. SPRINTEC [Concomitant]
  3. CYPROHEPTADINE HCL [Concomitant]
  4. RANITIDINE [Concomitant]
  5. M.V.I. [Concomitant]
  6. METAMUCIL-2 [Concomitant]
  7. SIMETHICONE [Concomitant]
  8. VIACTIV [Concomitant]
  9. VITAMIN B-12 [Concomitant]
  10. KLOR-CON [Concomitant]
  11. DITROPAN [Concomitant]
  12. FERROUS SULFATE TAB [Concomitant]
  13. VITAMINS-C [Concomitant]
  14. FAZACLO ODT [Suspect]
     Indication: SCHIZOPHRENIA
     Dosage: 100MG PO QD
     Route: 048
     Dates: start: 20041013, end: 20041018
  15. SINGULAIR [Concomitant]
  16. LEVOTHYROXINE SODIUM [Concomitant]
  17. FLUDROCORTISONE [Concomitant]

REACTIONS (1)
  - RASH [None]
